FAERS Safety Report 4476169-X (Version None)
Quarter: 2004Q3

REPORT INFORMATION
  Report Type: 
  Country: None (occurrence: None)
  Receive Date: 20040923
  Receipt Date: 20040810
  Transmission Date: 20050211
  Serious: No
  Sender: FDA-Public Use
  Company Number: USA040875206

PATIENT
  Age: 82 Year
  Sex: Male
  Weight: 86 kg

DRUGS (6)
  1. FORTEO [Suspect]
     Indication: BONE DENSITY DECREASED
     Dosage: 20 UG/1 DAY
     Dates: start: 20040706
  2. NIACIN [Concomitant]
  3. ZOCOR [Concomitant]
  4. LASIX [Concomitant]
  5. ONE-A-DAY [Concomitant]
  6. TUMS (CALCIUM CARBONATE) [Concomitant]

REACTIONS (2)
  - FATIGUE [None]
  - FEELING ABNORMAL [None]
